FAERS Safety Report 5304444-5 (Version None)
Quarter: 2007Q2

REPORT INFORMATION
  Report Type: 
  Country: None (occurrence: None)
  Receive Date: 20070417
  Receipt Date: 20070417
  Transmission Date: 20071010
  Serious: No
  Sender: FDA-Public Use
  Company Number: None

PATIENT
  Age: 76 Year
  Sex: Female

DRUGS (2)
  1. SPIRONOLACTONE [Suspect]
     Indication: HYPERTENSION
     Dosage: 1/2 - 1 1/2 TABS QAM PO
     Route: 048
     Dates: start: 20060718, end: 20061229
  2. SPIRONOLACTONE [Suspect]
     Dosage: 2 TABS QAM PO
     Route: 048
     Dates: start: 20070102, end: 20070109

REACTIONS (1)
  - BLOOD POTASSIUM INCREASED [None]
